FAERS Safety Report 6309648-0 (Version None)
Quarter: 2009Q3

REPORT INFORMATION
  Report Type: 
  Country: None (occurrence: None)
  Receive Date: 20090814
  Receipt Date: 20090806
  Transmission Date: 20100115
  Serious: Yes (Hospitalization, Other)
  Sender: FDA-Public Use
  Company Number: PHHY2009GB30549

PATIENT
  Age: 8 Month
  Sex: Female
  Weight: 9.4 kg

DRUGS (3)
  1. CYCLOSPORINE [Suspect]
     Indication: HEART TRANSPLANT
     Dosage: UNK
     Dates: start: 19950713
  2. CYCLOSPORINE [Suspect]
     Dosage: UNK
  3. AZATHIOPRINE [Concomitant]
     Indication: HEART TRANSPLANT
     Dosage: UNK
     Dates: start: 19950713

REACTIONS (18)
  - AORTIC DISSECTION [None]
  - ARTERIAL REPAIR [None]
  - B-CELL LYMPHOMA [None]
  - CARDIAC OPERATION [None]
  - CARDIOPULMONARY BYPASS [None]
  - COMPLICATIONS OF TRANSPLANTED HEART [None]
  - EJECTION FRACTION DECREASED [None]
  - EPSTEIN-BARR VIRUS ASSOCIATED LYMPHOPROLIFERATIVE DISORDER [None]
  - HEPATOSPLENOMEGALY [None]
  - LUNG NEOPLASM [None]
  - LYMPHADENOPATHY [None]
  - LYMPHADENOPATHY MEDIASTINAL [None]
  - LYMPHOID TISSUE HYPERPLASIA [None]
  - OBSTRUCTIVE AIRWAYS DISORDER [None]
  - PYREXIA [None]
  - RESPIRATORY DISTRESS [None]
  - SPLENOMEGALY [None]
  - STERNOTOMY [None]
